FAERS Safety Report 7555316-7 (Version None)
Quarter: 2011Q2

REPORT INFORMATION
  Report Type: 
  Country: None (occurrence: None)
  Receive Date: 20110617
  Receipt Date: 20110603
  Transmission Date: 20111010
  Serious: Yes (Other)
  Sender: FDA-Public Use
  Company Number: PHHY2011US48665

PATIENT
  Sex: Female

DRUGS (2)
  1. VITAMIN TAB [Concomitant]
     Dosage: UNK
  2. VIVELLE-DOT [Suspect]
     Dosage: 0.037 MG, TWICE WEEKLY
     Route: 062
     Dates: start: 19890101

REACTIONS (3)
  - THYROID NEOPLASM [None]
  - METAL POISONING [None]
  - ALOPECIA [None]
